FAERS Safety Report 4587425-9 (Version None)
Quarter: 2005Q1

REPORT INFORMATION
  Report Type: 
  Country: None (occurrence: None)
  Receive Date: 20050218
  Receipt Date: 20050210
  Transmission Date: 20050727
  Serious: Yes (Hospitalization)
  Sender: FDA-Public Use
  Company Number: DE-ABBOTT-05P-062-0290320-00

PATIENT
  Age: 47 Year
  Sex: Female

DRUGS (12)
  1. ERGENYL SOLUTION [Suspect]
     Indication: BIPOLAR I DISORDER
     Route: 048
     Dates: start: 20040726, end: 20040728
  2. ERGENYL SOLUTION [Suspect]
     Route: 048
     Dates: start: 20040719, end: 20040725
  3. ERGENYL SOLUTION [Suspect]
     Route: 048
     Dates: start: 20040729, end: 20040802
  4. ERGENYL SOLUTION [Suspect]
     Route: 048
     Dates: start: 20040803, end: 20040805
  5. ERGENYL SOLUTION [Suspect]
     Route: 048
     Dates: start: 20040806, end: 20040816
  6. RISPERIDONE [Concomitant]
     Indication: BIPOLAR DISORDER
     Route: 048
     Dates: start: 20040719, end: 20040731
  7. THIORIDAZINE HCL [Concomitant]
     Indication: BIPOLAR DISORDER
     Route: 048
     Dates: start: 20040728, end: 20040806
  8. OLANZAPINE [Concomitant]
     Indication: BIPOLAR DISORDER
     Dates: start: 20040731, end: 20040902
  9. KALINOR-BRAUSETABLETTEN [Concomitant]
     Indication: DRUG USE FOR UNKNOWN INDICATION
     Route: 048
     Dates: start: 20040719, end: 20040910
  10. GLIBENCLAMIDE [Concomitant]
     Indication: DIABETES MELLITUS
     Route: 048
     Dates: start: 20040721, end: 20040731
  11. NULYTELY [Concomitant]
     Indication: DRUG USE FOR UNKNOWN INDICATION
     Route: 048
     Dates: start: 20040728, end: 20040806
  12. THIORIDAZINE HCL [Concomitant]
     Indication: DRUG USE FOR UNKNOWN INDICATION
     Dates: start: 20040728

REACTIONS (4)
  - COORDINATION ABNORMAL [None]
  - DISTURBANCE IN ATTENTION [None]
  - DYSARTHRIA [None]
  - SEDATION [None]
